FAERS Safety Report 7305005-9 (Version None)
Quarter: 2011Q1

REPORT INFORMATION
  Report Type: 
  Country: None (occurrence: None)
  Receive Date: 20110222
  Receipt Date: 20100713
  Transmission Date: 20110831
  Serious: No
  Sender: FDA-Public Use
  Company Number: US-PFIZER INC-2010060136

PATIENT
  Sex: Male
  Weight: 86.168 kg

DRUGS (3)
  1. XALATAN [Suspect]
     Indication: GLAUCOMA
     Dosage: 1 GTT, DAILY UNK
     Route: 047
     Dates: start: 20061215
  2. LATANOPROST [Suspect]
     Dosage: UNK
  3. COMBIVENT [Concomitant]
     Dosage: UNK

REACTIONS (1)
  - THERAPEUTIC PRODUCT INEFFECTIVE [None]
